FAERS Safety Report 6203027-2 (Version None)
Quarter: 2009Q2

REPORT INFORMATION
  Report Type: 
  Country: None (occurrence: None)
  Receive Date: 20090527
  Receipt Date: 20090520
  Transmission Date: 20091009
  Serious: Yes (Death)
  Sender: FDA-Public Use
  Company Number: IL-CELGENEUS-082-C5013-09051338

PATIENT
  Age: 53 Year
  Sex: Female

DRUGS (1)
  1. CC-5013 [Suspect]
     Route: 048
     Dates: start: 20090301

REACTIONS (1)
  - DEATH [None]
